FAERS Safety Report 5511052-X (Version None)
Quarter: 2007Q4

REPORT INFORMATION
  Report Type: 
  Country: None (occurrence: None)
  Receive Date: 20071109
  Receipt Date: 20071030
  Transmission Date: 20080405
  Serious: Yes (Other)
  Sender: FDA-Public Use
  Company Number: PHHO2007BE14322

PATIENT
  Age: 53 Year
  Sex: Female
  Weight: 60 kg

DRUGS (7)
  1. ZOMETA [Suspect]
     Indication: MULTIPLE MYELOMA
     Dosage: 4MG EVERY 3-4 WEEKS
     Route: 042
     Dates: start: 20041203, end: 20070803
  2. CALCIUM [Concomitant]
  3. VITAMIN D [Concomitant]
  4. HEXTOL [Concomitant]
  5. VIBRA-TABS [Concomitant]
  6. CHEMOTHERAPEUTICS NOS [Concomitant]
  7. CORTICOSTEROIDS [Concomitant]

REACTIONS (4)
  - GENERALISED ERYTHEMA [None]
  - OSTEONECROSIS [None]
  - PAIN [None]
  - SWELLING [None]
